FAERS Safety Report 24903664 (Version 1)
Quarter: 2025Q1

REPORT INFORMATION
  Report Type: Spontaneous
  Country: US (occurrence: None)
  Receive Date: 20250129
  Receipt Date: 20250129
  Transmission Date: 20250409
  Serious: Yes (Life-Threatening, Disabling)
  Sender: FDA-CTU
  Company Number: None

PATIENT
  Age: 28 Year
  Sex: Male
  Weight: 72 kg

DRUGS (8)
  1. DULOXETINE HYDROCHLORIDE [Suspect]
     Active Substance: DULOXETINE HYDROCHLORIDE
     Indication: Depression
     Dosage: FREQUENCY : DAILY;?
     Route: 048
     Dates: start: 20240801, end: 20241230
  2. DULOXETINE HYDROCHLORIDE [Suspect]
     Active Substance: DULOXETINE HYDROCHLORIDE
     Indication: Fibromyalgia
  3. MODAFINIL [Concomitant]
     Active Substance: MODAFINIL
  4. Mandibular Advancement Device [Concomitant]
  5. FISH OIL [Concomitant]
     Active Substance: FISH OIL
  6. VITAMINS [Concomitant]
     Active Substance: VITAMINS
  7. TYLENOL [Concomitant]
     Active Substance: ACETAMINOPHEN
  8. Magnesium/Calcium/Zinc [Concomitant]

REACTIONS (16)
  - Postural orthostatic tachycardia syndrome [None]
  - Therapy change [None]
  - Suicidal ideation [None]
  - Depression [None]
  - Fatigue [None]
  - Somnolence [None]
  - Electric shock sensation [None]
  - Diarrhoea [None]
  - Nausea [None]
  - Myalgia [None]
  - Visual impairment [None]
  - Balance disorder [None]
  - Tinnitus [None]
  - Heart rate increased [None]
  - Abdominal discomfort [None]
  - Withdrawal syndrome [None]

NARRATIVE: CASE EVENT DATE: 20241231
